FAERS Safety Report 9348849 (Version 3)
Quarter: 2013Q3

REPORT INFORMATION
  Report Type: Spontaneous
  Country: FR (occurrence: FR)
  Receive Date: 20130614
  Receipt Date: 20130712
  Transmission Date: 20140515
  Serious: Yes (Other)
  Sender: FDA-Public Use
  Company Number: FR-TEVA-412399ISR

PATIENT
  Age: 99 Year
  Sex: Female

DRUGS (6)
  1. FUROSEMIDE TEVA 40 MG [Suspect]
     Indication: PULMONARY OEDEMA
     Dosage: 8 TABLETS IN TOTAL
     Route: 048
     Dates: end: 20130609
  2. DIFFU K [Concomitant]
  3. TARDYFERON? [Concomitant]
  4. EUPHYTOSE? [Concomitant]
  5. SEROPLEX? [Concomitant]
     Indication: PROPHYLAXIS AGAINST GASTROINTESTINAL ULCER
  6. PANTOPRAZOLE [Concomitant]

REACTIONS (5)
  - Convulsion [Recovering/Resolving]
  - Coordination abnormal [Recovering/Resolving]
  - Vertigo [Unknown]
  - Agitation [Unknown]
  - Aggression [Unknown]
